FAERS Safety Report 9772868 (Version 3)
Quarter: 2015Q1

REPORT INFORMATION
  Report Type: Report from Study
  Country: CZ (occurrence: CZ)
  Receive Date: 20131219
  Receipt Date: 20150319
  Transmission Date: 20150721
  Serious: Yes (Hospitalization)
  Sender: FDA-Public Use
  Company Number: 2013SP003464

PATIENT
  Age: 41 Year
  Sex: Male
  Weight: 78 kg

DRUGS (3)
  1. SM-13496 [Suspect]
     Active Substance: LURASIDONE HYDROCHLORIDE
     Indication: BIPOLAR DISORDER
     Route: 048
     Dates: start: 20131113, end: 20131118
  2. LITHIUM [Concomitant]
     Active Substance: LITHIUM CARBONATE
     Indication: BIPOLAR I DISORDER
     Route: 048
     Dates: start: 20131106, end: 20131118
  3. ZYPREXA [Concomitant]
     Active Substance: OLANZAPINE
     Indication: BIPOLAR I DISORDER
     Route: 048
     Dates: start: 20131106, end: 20131110

REACTIONS (1)
  - Toxicity to various agents [Recovered/Resolved]

NARRATIVE: CASE EVENT DATE: 20131118
